FAERS Safety Report 17663071 (Version 5)
Quarter: 2020Q2

REPORT INFORMATION
  Report Type: Spontaneous
  Country: US (occurrence: US)
  Receive Date: 20200413
  Receipt Date: 20200616
  Transmission Date: 20200713
  Serious: No
  Sender: FDA-Public Use
  Company Number: US-ACTELION-A-US2020-204209

PATIENT
  Age: 27 Year
  Sex: Male
  Weight: 117.91 kg

DRUGS (2)
  1. OPSUMIT [Suspect]
     Active Substance: MACITENTAN
     Indication: PULMONARY ARTERIAL HYPERTENSION
     Dosage: 10 MG, QD
     Route: 048
  2. ADEMPAS [Concomitant]
     Active Substance: RIOCIGUAT
     Indication: PRODUCT USED FOR UNKNOWN INDICATION
     Dosage: 0.5 MG, TID
     Route: 065
     Dates: start: 202003

REACTIONS (8)
  - Fatigue [Unknown]
  - Pain in extremity [Unknown]
  - Faeces hard [Unknown]
  - Chest discomfort [Unknown]
  - Abdominal pain upper [Unknown]
  - Haematochezia [Not Recovered/Not Resolved]
  - Faeces discoloured [Unknown]
  - Headache [Not Recovered/Not Resolved]

NARRATIVE: CASE EVENT DATE: 20200404
